FAERS Safety Report 10762586 (Version 1)
Quarter: 2015Q1

REPORT INFORMATION
  Report Type: Spontaneous
  Country: US (occurrence: None)
  Receive Date: 20150128
  Receipt Date: 20150128
  Transmission Date: 20150721
  Serious: No
  Sender: FDA-Public Use
  Company Number: 1401602

PATIENT
  Age: 50 Year
  Sex: Female

DRUGS (2)
  1. RITUXIMAB (RITUXIMAB)(INFUSION) [Suspect]
     Active Substance: RITUXIMAB
     Indication: MULTIPLE SCLEROSIS
     Dosage: 1 INFUSION 2 WEEKS APART ( G), INTRAVENOUS DRIP
     Route: 042
     Dates: start: 201401
  2. TYSABRI [Suspect]
     Active Substance: NATALIZUMAB
     Indication: MULTIPLE SCLEROSIS
     Dates: end: 201309

REACTIONS (1)
  - Progressive multifocal leukoencephalopathy [None]
